FAERS Safety Report 12061072 (Version 1)
Quarter: 2016Q1

REPORT INFORMATION
  Report Type: Report from Study
  Country: MX (occurrence: MX)
  Receive Date: 20160210
  Receipt Date: 20160210
  Transmission Date: 20160526
  Serious: Yes (Hospitalization)
  Sender: FDA-Public Use
  Company Number: MX-ELI_LILLY_AND_COMPANY-MX201510000343

PATIENT
  Age: 58 Year
  Sex: Female
  Weight: 45 kg

DRUGS (2)
  1. FORTEO [Suspect]
     Active Substance: TERIPARATIDE
     Indication: OSTEOPOROSIS
     Dosage: UNK, QD
     Route: 065
     Dates: start: 20150925, end: 20150927
  2. FORTEO [Suspect]
     Active Substance: TERIPARATIDE
     Dosage: UNK UNK, QD
     Route: 065
     Dates: start: 20151015

REACTIONS (7)
  - Nausea [Recovered/Resolved]
  - Dehydration [Not Recovered/Not Resolved]
  - Vomiting [Unknown]
  - Sleep disorder due to a general medical condition [Unknown]
  - Migraine [Not Recovered/Not Resolved]
  - Urticaria [Not Recovered/Not Resolved]
  - Nausea [Recovering/Resolving]

NARRATIVE: CASE EVENT DATE: 20150925
